FAERS Safety Report 7668577-0 (Version None)
Quarter: 2011Q3

REPORT INFORMATION
  Report Type: 
  Country: None (occurrence: None)
  Receive Date: 20110808
  Receipt Date: 20110808
  Transmission Date: 20111222
  Serious: Yes (Hospitalization)
  Sender: FDA-Public Use
  Company Number: None

PATIENT
  Age: 55 Year
  Sex: Female
  Weight: 89 kg

DRUGS (9)
  1. ROSUVASTATIN [Concomitant]
     Route: 048
  2. SPIRONOLACTONE [Concomitant]
     Route: 048
  3. ACETAMINOPHEN [Concomitant]
     Route: 048
  4. ASPIRIN [Concomitant]
     Route: 048
  5. FUROSEMIDE [Concomitant]
     Route: 048
  6. TRIMETHOPRIM + SULFAMETHOXAZOLE [Suspect]
     Indication: CELLULITIS
     Dosage: UNKNOWN
     Route: 048
  7. INSULIN DETEMIR [Concomitant]
     Route: 058
  8. SLIDING SCALE INSULIN [Concomitant]
     Route: 058
  9. LISINOPRIL [Concomitant]
     Route: 048

REACTIONS (6)
  - DYSPNOEA [None]
  - RASH [None]
  - SWELLING FACE [None]
  - OXYGEN SATURATION DECREASED [None]
  - PRURITUS [None]
  - CARDIAC FAILURE CONGESTIVE [None]
